FAERS Safety Report 4762069-4 (Version None)
Quarter: 2005Q3

REPORT INFORMATION
  Report Type: 
  Country: None (occurrence: None)
  Receive Date: 20050831
  Receipt Date: 20050524
  Transmission Date: 20060218
  Serious: No
  Sender: FDA-Public Use
  Company Number: PHEH2005US05934

PATIENT
  Age: 89 Year
  Sex: Male

DRUGS (5)
  1. ENABLEX [Suspect]
     Indication: HYPERTONIC BLADDER
     Dosage: 7.5 MG, QD, ORAL
     Route: 048
     Dates: start: 20050510
  2. NEXIUM [Concomitant]
  3. ALTACE [Concomitant]
  4. METOPROLOL TARTRATE [Concomitant]
  5. PROSCAR [Concomitant]

REACTIONS (1)
  - DRY MOUTH [None]
